FAERS Safety Report 12543152 (Version 2)
Quarter: 2020Q1

REPORT INFORMATION
  Report Type: Report from Study
  Country: BR (occurrence: BR)
  Receive Date: 20160711
  Receipt Date: 20200207
  Transmission Date: 20200409
  Serious: Yes (Hospitalization, Other)
  Sender: FDA-Public Use
  Company Number: BR-ROCHE-1461508

PATIENT
  Age: 60 Year
  Sex: Female
  Weight: 56 kg

DRUGS (9)
  1. MABTHERA [Suspect]
     Active Substance: RITUXIMAB
     Indication: RHEUMATOID ARTHRITIS
     Dosage: LAST INFUSION ON : 01-NOV-2015.
     Route: 042
     Dates: start: 20140224, end: 20160725
  2. CITALOPRAM [Concomitant]
     Active Substance: CITALOPRAM HYDROBROMIDE
  3. MABTHERA [Suspect]
     Active Substance: RITUXIMAB
     Route: 042
     Dates: start: 20140922
  4. ATORVASTATIN [Concomitant]
     Active Substance: ATORVASTATIN
  5. CALCORT [Concomitant]
     Active Substance: DEFLAZACORT
     Indication: RHEUMATOID ARTHRITIS
  6. ACTEMRA [Suspect]
     Active Substance: TOCILIZUMAB
     Indication: RHEUMATOID ARTHRITIS
     Route: 065
     Dates: start: 20171207
  7. CELEBRA [Concomitant]
     Active Substance: CELECOXIB
  8. CALCORT [Concomitant]
     Active Substance: DEFLAZACORT
  9. DEFLAZACORT [Concomitant]
     Active Substance: DEFLAZACORT

REACTIONS (11)
  - Sinusitis [Unknown]
  - Confusional state [Not Recovered/Not Resolved]
  - Pain [Not Recovered/Not Resolved]
  - Spinal disorder [Recovering/Resolving]
  - Sensory disturbance [Unknown]
  - Dizziness [Unknown]
  - Headache [Unknown]
  - Immunodeficiency [Unknown]
  - Hypersensitivity [Recovered/Resolved]
  - Arthropathy [Recovering/Resolving]
  - Gastroenteritis [Unknown]

NARRATIVE: CASE EVENT DATE: 20140903
